FAERS Safety Report 9022277 (Version 2)
Quarter: 2013Q1

REPORT INFORMATION
  Report Type: Spontaneous
  Country: US (occurrence: US)
  Receive Date: 20130118
  Receipt Date: 20130214
  Transmission Date: 20140127
  Serious: Yes (Hospitalization)
  Sender: FDA-Public Use
  Company Number: US-BAYER-2013-005999

PATIENT
  Age: 16 Year
  Sex: Female

DRUGS (2)
  1. YAZ [Suspect]
     Dosage: UNK
  2. OCELLA [Suspect]
     Dosage: UNK

REACTIONS (3)
  - Pulmonary embolism [Recovered/Resolved]
  - Pelvic venous thrombosis [None]
  - Deep vein thrombosis [None]
